FAERS Safety Report 5637376-3 (Version None)
Quarter: 2008Q1

REPORT INFORMATION
  Report Type: 
  Country: None (occurrence: None)
  Receive Date: 20080225
  Receipt Date: 20080213
  Transmission Date: 20080703
  Serious: No
  Sender: FDA-Public Use
  Company Number: US-PFIZER INC-2008001033

PATIENT
  Sex: Female
  Weight: 58.1 kg

DRUGS (14)
  1. CHANTIX [Suspect]
     Indication: EX-SMOKER
  2. GLUCOTROL [Concomitant]
  3. LASIX [Concomitant]
  4. PERCOCET [Concomitant]
  5. CARDIZEM CD [Concomitant]
  6. PRAVACHOL [Concomitant]
  7. ATENOLOL [Concomitant]
  8. TRANXENE-T [Concomitant]
  9. VASOTEC [Concomitant]
  10. FISH OIL [Concomitant]
  11. CENTRUM SILVER [Concomitant]
  12. CALCIUM [Concomitant]
  13. ALBUTEROL [Concomitant]
  14. OXYGEN [Concomitant]

REACTIONS (1)
  - NO ADVERSE EVENT [None]
